FAERS Safety Report 24005929 (Version 2)
Quarter: 2024Q4

REPORT INFORMATION
  Report Type: Spontaneous
  Country: US (occurrence: US)
  Receive Date: 20240624
  Receipt Date: 20241122
  Transmission Date: 20250114
  Serious: No
  Sender: INSUD PHARMA
  Company Number: US-INSUD PHARMA-2406US04951

PATIENT

DRUGS (1)
  1. SLYND [Suspect]
     Active Substance: DROSPIRENONE
     Indication: Product used for unknown indication
     Dosage: UNK
     Route: 048

REACTIONS (3)
  - Mood swings [Unknown]
  - Weight increased [Unknown]
  - Amenorrhoea [Unknown]
